APPROVED DRUG PRODUCT: EKTERLY
Active Ingredient: SEBETRALSTAT
Strength: 300MG
Dosage Form/Route: TABLET;ORAL
Application: N219301 | Product #001
Applicant: KALVISTA PHARMACEUTICALS LTD
Approved: Jul 3, 2025 | RLD: Yes | RS: Yes | Type: RX

PATENTS:
Patent 11739068 | Expires: Jun 23, 2037
Patent 11234939 | Expires: Jan 26, 2039
Patent 11198691 | Expires: Nov 26, 2035
Patent 11084809 | Expires: Nov 26, 2035
Patent 10611758 | Expires: Nov 26, 2035
Patent 10364238 | Expires: Nov 26, 2035
Patent 11001578 | Expires: Nov 26, 2035
Patent 11230537 | Expires: Dec 25, 2037

EXCLUSIVITY:
Code: NCE | Date: Jul 3, 2030